FAERS Safety Report 8604288-2 (Version None)
Quarter: 2012Q3

REPORT INFORMATION
  Report Type: 
  Country: None (occurrence: None)
  Receive Date: 20120820
  Receipt Date: 20120810
  Transmission Date: 20120928
  Serious: Yes (Hospitalization)
  Sender: FDA-Public Use
  Company Number: GB-JNJFOC-20120413340

PATIENT
  Sex: Female

DRUGS (3)
  1. SIMPONI [Suspect]
     Route: 058
     Dates: start: 20120329
  2. SIMPONI [Suspect]
     Indication: PSORIATIC ARTHROPATHY
     Route: 058
     Dates: start: 20120228
  3. SIMPONI [Suspect]
     Route: 058

REACTIONS (1)
  - MENINGITIS VIRAL [None]
